FAERS Safety Report 14335831 (Version 1)
Quarter: 2017Q4

REPORT INFORMATION
  Report Type: Spontaneous
  Country: DE (occurrence: DE)
  Receive Date: 20171229
  Receipt Date: 20171229
  Transmission Date: 20180321
  Serious: Yes (Hospitalization, Other)
  Sender: FDA-Public Use
  Company Number: DE-WEST-WARD PHARMACEUTICALS CORP.-DE-H14001-17-05207

PATIENT
  Age: 63 Year
  Sex: Male
  Weight: 143.4 kg

DRUGS (12)
  1. CIPROFLOXACIN. [Suspect]
     Active Substance: CIPROFLOXACIN
     Indication: SEPSIS
     Route: 048
     Dates: start: 20160525, end: 20160620
  2. PLACEBO [Suspect]
     Active Substance: UNSPECIFIED INGREDIENT
     Route: 058
     Dates: start: 20160210, end: 20160505
  3. PLACEBO [Suspect]
     Active Substance: UNSPECIFIED INGREDIENT
     Indication: TYPE 2 DIABETES MELLITUS
     Route: 058
     Dates: start: 20150806, end: 20151119
  4. PIPERACILLIN AND TAZOBACTAM [Suspect]
     Active Substance: PIPERACILLIN SODIUM\TAZOBACTAM SODIUM
     Indication: SEPSIS
     Route: 042
     Dates: start: 20160512, end: 20160524
  5. ALBIGLUTIDE [Suspect]
     Active Substance: ALBIGLUTIDE
     Route: 058
     Dates: start: 20160210, end: 20160505
  6. ALBIGLUTIDE [Suspect]
     Active Substance: ALBIGLUTIDE
     Route: 058
     Dates: start: 20151214, end: 20160128
  7. CLINDAMYCIN. [Suspect]
     Active Substance: CLINDAMYCIN
     Indication: SEPSIS
     Route: 042
     Dates: start: 20160512, end: 20160524
  8. ALBIGLUTIDE [Suspect]
     Active Substance: ALBIGLUTIDE
     Indication: TYPE 2 DIABETES MELLITUS
     Route: 058
     Dates: start: 20150806, end: 20151119
  9. PLACEBO [Suspect]
     Active Substance: UNSPECIFIED INGREDIENT
     Route: 058
     Dates: start: 20160527
  10. ALBIGLUTIDE [Suspect]
     Active Substance: ALBIGLUTIDE
     Route: 058
     Dates: start: 20160527
  11. HYDROMORPHONE [Suspect]
     Active Substance: HYDROMORPHONE
     Indication: ERYSIPELAS
     Route: 048
     Dates: start: 20160512, end: 20160527
  12. PLACEBO [Suspect]
     Active Substance: UNSPECIFIED INGREDIENT
     Route: 058
     Dates: start: 20151214, end: 20160128

REACTIONS (1)
  - Erysipelas [Recovered/Resolved]

NARRATIVE: CASE EVENT DATE: 20160512
